FAERS Safety Report 8062964-7 (Version None)
Quarter: 2012Q1

REPORT INFORMATION
  Report Type: 
  Country: None (occurrence: None)
  Receive Date: 20120123
  Receipt Date: 20120109
  Transmission Date: 20120608
  Serious: Yes (Hospitalization)
  Sender: FDA-Public Use
  Company Number: US-MYLANLABS-2012S1000852

PATIENT
  Age: 43 Year
  Sex: Female

DRUGS (2)
  1. ENTOCORT EC [Concomitant]
     Indication: CROHN'S DISEASE
     Route: 065
  2. AZATHIOPRINE [Suspect]
     Indication: CROHN'S DISEASE
     Dosage: DOSE INCREASED AFTER 10 DAYS TO 75 MG/DAY
     Route: 065

REACTIONS (1)
  - ACUTE FEBRILE NEUTROPHILIC DERMATOSIS [None]
